FAERS Safety Report 6187887-X (Version None)
Quarter: 2009Q2

REPORT INFORMATION
  Report Type: 
  Country: None (occurrence: None)
  Receive Date: 20090513
  Receipt Date: 20090430
  Transmission Date: 20091009
  Serious: Yes (Hospitalization)
  Sender: FDA-Public Use
  Company Number: JP-AVENTIS-200812943JP

PATIENT
  Age: 74 Year
  Sex: Male
  Weight: 52.05 kg

DRUGS (84)
  1. AFLIBERCEPT [Suspect]
     Route: 041
     Dates: start: 20080814
  2. DOCETAXEL [Suspect]
     Route: 041
     Dates: start: 20080814
  3. PRIMPERAN                          /00041901/ [Concomitant]
     Dates: start: 20080704, end: 20080906
  4. PRIMPERAN                          /00041901/ [Concomitant]
     Dates: start: 20081004, end: 20081004
  5. PRIMPERAN                          /00041901/ [Concomitant]
     Dates: start: 20081008, end: 20081109
  6. MOHRUS [Concomitant]
     Dates: start: 20080619, end: 20080701
  7. MOHRUS [Concomitant]
     Dates: start: 20080725, end: 20080729
  8. MOHRUS [Concomitant]
     Dates: start: 20080811, end: 20080905
  9. ISODINE [Concomitant]
     Dates: start: 20080730, end: 20080920
  10. ISODINE [Concomitant]
     Dates: start: 20081008, end: 20081013
  11. ISODINE [Concomitant]
     Dates: start: 20081015, end: 20081205
  12. HACHIAZULE                         /00317302/ [Concomitant]
     Dates: start: 20080627, end: 20080730
  13. HACHIAZULE                         /00317302/ [Concomitant]
     Dates: start: 20080817, end: 20080826
  14. HACHIAZULE                         /00317302/ [Concomitant]
     Dates: start: 20080906, end: 20081007
  15. HACHIAZULE                         /00317302/ [Concomitant]
     Dates: start: 20081014, end: 20081014
  16. HACHIAZULE                         /00317302/ [Concomitant]
     Dates: start: 20081025, end: 20081123
  17. HACHIAZULE                         /00317302/ [Concomitant]
     Dates: start: 20081205
  18. PRAVASTATIN SODIUM [Concomitant]
     Dates: start: 19990101
  19. RANITIDINE HYDROCHLORIDE [Concomitant]
     Dates: start: 20080526, end: 20080624
  20. RANITIDINE HYDROCHLORIDE [Concomitant]
     Dates: start: 20080715, end: 20080721
  21. RANITIDINE HYDROCHLORIDE [Concomitant]
     Dates: start: 20080813, end: 20080820
  22. RANITIDINE HYDROCHLORIDE [Concomitant]
     Dates: start: 20080923, end: 20080930
  23. RANITIDINE HYDROCHLORIDE [Concomitant]
     Dates: start: 20081028, end: 20081104
  24. RANITIDINE HYDROCHLORIDE [Concomitant]
     Dates: start: 20081202, end: 20081209
  25. DEXAMETHASONE 4MG TAB [Concomitant]
     Dates: start: 20080607, end: 20080616
  26. DEXAMETHASONE 4MG TAB [Concomitant]
     Route: 048
     Dates: start: 20080617, end: 20080617
  27. DEXAMETHASONE 4MG TAB [Concomitant]
     Route: 048
     Dates: start: 20080618, end: 20080618
  28. DEXAMETHASONE 4MG TAB [Concomitant]
     Route: 048
     Dates: start: 20080618, end: 20080618
  29. DEXAMETHASONE 4MG TAB [Concomitant]
     Route: 048
     Dates: start: 20080619, end: 20080619
  30. DEXAMETHASONE 4MG TAB [Concomitant]
     Dates: start: 20080625, end: 20080701
  31. DEXAMETHASONE 4MG TAB [Concomitant]
     Route: 048
     Dates: start: 20080715, end: 20080715
  32. DEXAMETHASONE 4MG TAB [Concomitant]
     Route: 048
     Dates: start: 20080716, end: 20080716
  33. DEXAMETHASONE 4MG TAB [Concomitant]
     Route: 048
     Dates: start: 20080716, end: 20080716
  34. DEXAMETHASONE 4MG TAB [Concomitant]
     Route: 048
     Dates: start: 20080717, end: 20080717
  35. DEXAMETHASONE 4MG TAB [Concomitant]
     Route: 048
     Dates: start: 20080813, end: 20080813
  36. DEXAMETHASONE 4MG TAB [Concomitant]
     Route: 048
     Dates: start: 20080814, end: 20080814
  37. DEXAMETHASONE 4MG TAB [Concomitant]
     Route: 048
     Dates: start: 20080814, end: 20080814
  38. DEXAMETHASONE 4MG TAB [Concomitant]
     Route: 048
     Dates: start: 20080815, end: 20080815
  39. DEXAMETHASONE 4MG TAB [Concomitant]
     Route: 048
     Dates: start: 20080923, end: 20080923
  40. DEXAMETHASONE 4MG TAB [Concomitant]
     Route: 048
     Dates: start: 20080924, end: 20080924
  41. DEXAMETHASONE 4MG TAB [Concomitant]
     Route: 048
     Dates: start: 20080924, end: 20080924
  42. DEXAMETHASONE 4MG TAB [Concomitant]
     Route: 048
     Dates: start: 20080925, end: 20080925
  43. DEXAMETHASONE 4MG TAB [Concomitant]
     Route: 048
     Dates: start: 20081028, end: 20081028
  44. DEXAMETHASONE 4MG TAB [Concomitant]
     Route: 048
     Dates: start: 20081029, end: 20081029
  45. DEXAMETHASONE 4MG TAB [Concomitant]
     Route: 048
     Dates: start: 20081029, end: 20081029
  46. DEXAMETHASONE 4MG TAB [Concomitant]
     Route: 048
     Dates: start: 20081030, end: 20081030
  47. DEXAMETHASONE 4MG TAB [Concomitant]
     Route: 048
     Dates: start: 20081202, end: 20081202
  48. DEXAMETHASONE 4MG TAB [Concomitant]
     Route: 048
     Dates: start: 20081203, end: 20081203
  49. DEXAMETHASONE 4MG TAB [Concomitant]
     Route: 048
     Dates: start: 20081203, end: 20081203
  50. DEXAMETHASONE 4MG TAB [Concomitant]
     Route: 048
     Dates: start: 20081204, end: 20081204
  51. LENOGRASTIM [Concomitant]
     Dates: start: 20080624, end: 20080627
  52. LENOGRASTIM [Concomitant]
     Dates: start: 20080723, end: 20080726
  53. LENOGRASTIM [Concomitant]
     Dates: start: 20080821, end: 20080823
  54. LENOGRASTIM [Concomitant]
     Dates: start: 20081001, end: 20081004
  55. LENOGRASTIM [Concomitant]
     Dates: start: 20081105, end: 20081108
  56. LENOGRASTIM [Concomitant]
     Dates: start: 20081210, end: 20081213
  57. ACETAMINOPHEN [Concomitant]
     Dates: start: 20080712, end: 20080712
  58. ACETAMINOPHEN [Concomitant]
     Dates: start: 20080722, end: 20080812
  59. ACETAMINOPHEN [Concomitant]
     Dates: start: 20081209, end: 20081211
  60. ANTIBIOTICS-RESISTANT LACTIC ACID BACTERIAE [Concomitant]
     Dates: start: 20080626
  61. ANTIBIOTICS-RESISTANT LACTIC ACID BACTERIAE [Concomitant]
     Dates: end: 20080725
  62. ANTIBIOTICS-RESISTANT LACTIC ACID BACTERIAE [Concomitant]
     Dates: start: 20080811, end: 20080829
  63. ANTIBIOTICS-RESISTANT LACTIC ACID BACTERIAE [Concomitant]
     Dates: start: 20080912
  64. EPINEPHRINE [Concomitant]
     Dates: start: 20080629, end: 20080703
  65. SORBITOL LACTATED RINGER'S [Concomitant]
     Dates: start: 20080823, end: 20080823
  66. SORBITOL LACTATED RINGER'S [Concomitant]
     Dates: start: 20081212, end: 20081214
  67. ZOLPIDEM TARTRATE [Concomitant]
     Dates: start: 20080604, end: 20080629
  68. ZOLPIDEM TARTRATE [Concomitant]
     Dates: start: 20080707, end: 20080708
  69. ZOLPIDEM TARTRATE [Concomitant]
     Dates: start: 20080715, end: 20080729
  70. ZOLPIDEM TARTRATE [Concomitant]
     Dates: start: 20080813, end: 20080826
  71. ZOLPIDEM TARTRATE [Concomitant]
     Dates: start: 20080916, end: 20080917
  72. ZOLPIDEM TARTRATE [Concomitant]
     Dates: start: 20080922, end: 20081110
  73. ZOLPIDEM TARTRATE [Concomitant]
     Dates: start: 20081203, end: 20081215
  74. NIFEDIPINE [Concomitant]
     Route: 048
     Dates: start: 20080630, end: 20080630
  75. LEVOFLOXACIN [Concomitant]
     Dates: start: 20080723, end: 20080807
  76. ALBUMIN TANNATE [Concomitant]
     Dates: start: 20080822, end: 20080822
  77. SCOPOLAMINE BUTHYLBROMIDE [Concomitant]
     Dates: start: 20080823, end: 20080823
  78. FLUOCINOLONE ACETONIDE [Concomitant]
     Dates: start: 20081104, end: 20081104
  79. BETAMETHASONE VALERATE [Concomitant]
     Dates: start: 20081105, end: 20081108
  80. BETAMETHASONE VALERATE [Concomitant]
     Dates: start: 20081129, end: 20081129
  81. BETAMETHASONE VALERATE [Concomitant]
     Dates: start: 20081206
  82. LOPERAMIDE HYDROCHLORIDE [Concomitant]
     Dates: start: 20081031, end: 20081031
  83. PL GRAN. [Concomitant]
     Dates: start: 20081106, end: 20081110
  84. DIPHENHYDRAMINE HCL [Concomitant]
     Dates: start: 20081207, end: 20081209

REACTIONS (1)
  - PNEUMOTHORAX [None]
